FAERS Safety Report 5935689-9 (Version None)
Quarter: 2008Q4

REPORT INFORMATION
  Report Type: 
  Country: None (occurrence: None)
  Receive Date: 20081030
  Receipt Date: 20081022
  Transmission Date: 20090506
  Serious: Yes (Other)
  Sender: FDA-Public Use
  Company Number: GT-ASTRAZENECA-2008UW23557

PATIENT
  Age: 35 Year
  Sex: Female

DRUGS (3)
  1. SYMBICORT [Suspect]
     Indication: BRONCHOSPASM
     Dosage: 160/4.5 UG
     Route: 055
     Dates: end: 20081018
  2. LEVOFLOXACIN [Concomitant]
     Indication: INFECTIOUS DISEASE CARRIER
     Route: 048
     Dates: end: 20081010
  3. LORATADINE [Concomitant]
     Indication: INFECTIOUS DISEASE CARRIER
     Route: 048
     Dates: end: 20081010

REACTIONS (6)
  - ANGIOEDEMA [None]
  - EYELID OEDEMA [None]
  - GINGIVAL EROSION [None]
  - GINGIVAL SWELLING [None]
  - ORAL DISORDER [None]
  - PHARYNGEAL OEDEMA [None]
